FAERS Safety Report 4866911-8 (Version None)
Quarter: 2005Q4

REPORT INFORMATION
  Report Type: 
  Country: None (occurrence: None)
  Receive Date: 20051222
  Receipt Date: 20051213
  Transmission Date: 20060501
  Serious: Yes (Hospitalization)
  Sender: FDA-Public Use
  Company Number: 2005160034

PATIENT
  Age: 45 Year
  Sex: Female
  Weight: 70 kg

DRUGS (4)
  1. LYRICA [Suspect]
     Indication: POLYNEUROPATHY
     Dosage: 600 MG (300 MG, 2 IN 1 D), ORAL
     Route: 048
     Dates: start: 20050921, end: 20051008
  2. ZOCOR [Concomitant]
  3. NORVASC [Concomitant]
  4. ACERBON (LISINOPRIL) [Concomitant]

REACTIONS (2)
  - ENCEPHALOPATHY [None]
  - PSYCHOTIC DISORDER [None]
